FAERS Safety Report 19372769 (Version 4)
Quarter: 2021Q2

REPORT INFORMATION
  Report Type: Spontaneous
  Country: US (occurrence: US)
  Receive Date: 20210604
  Receipt Date: 20210616
  Transmission Date: 20210717
  Serious: No
  Sender: FDA-Public Use
  Company Number: US-UNITED THERAPEUTICS-UNT-2021-009929

PATIENT
  Age: 69 Year
  Sex: Female
  Weight: 70.75 kg

DRUGS (6)
  1. TYVASO [Suspect]
     Active Substance: TREPROSTINIL
     Dosage: 12 ?G
     Dates: start: 202105, end: 20210507
  2. TYVASO [Suspect]
     Active Substance: TREPROSTINIL
     Dosage: 12 ?G
     Dates: start: 20210602, end: 20210604
  3. SILDENAFIL CITRATE. [Concomitant]
     Active Substance: SILDENAFIL CITRATE
     Indication: PRODUCT USED FOR UNKNOWN INDICATION
     Dosage: UNK
     Route: 065
  4. TYVASO [Suspect]
     Active Substance: TREPROSTINIL
     Indication: PULMONARY ARTERIAL HYPERTENSION
     Dosage: 18?54 ?G, QID
     Dates: start: 20210526
  5. TYVASO [Suspect]
     Active Substance: TREPROSTINIL
     Dosage: 6 ?G
     Dates: start: 20210507, end: 20210602
  6. TYVASO [Suspect]
     Active Substance: TREPROSTINIL
     Dosage: 18 ?G
     Dates: start: 202105, end: 202105

REACTIONS (15)
  - Chest discomfort [Unknown]
  - Pain in jaw [Not Recovered/Not Resolved]
  - Hypoaesthesia oral [Recovered/Resolved]
  - Cough [Unknown]
  - Hypotension [Unknown]
  - Exercise tolerance decreased [Not Recovered/Not Resolved]
  - Product label confusion [Unknown]
  - Oxygen saturation decreased [Recovered/Resolved]
  - Emphysema [Unknown]
  - Back pain [Unknown]
  - Asthenia [Unknown]
  - Flushing [Unknown]
  - Headache [Unknown]
  - Blood pressure diastolic decreased [Unknown]
  - Dizziness [Recovered/Resolved]

NARRATIVE: CASE EVENT DATE: 202105
